FAERS Safety Report 11748724 (Version 1)
Quarter: 2015Q4

REPORT INFORMATION
  Report Type: Report from Study
  Country: US (occurrence: US)
  Receive Date: 20151118
  Receipt Date: 20151118
  Transmission Date: 20160304
  Serious: Yes (Hospitalization, Other)
  Sender: FDA-Public Use
  Company Number: US-ROCHE-1607587

PATIENT
  Sex: Female

DRUGS (2)
  1. ERIBULIN MESYLATE [Suspect]
     Active Substance: ERIBULIN MESYLATE
     Indication: OESTROGEN RECEPTOR POSITIVE BREAST CANCER
     Dosage: ON DAY 1 AND DAY 8 OF EACH 21 DAY CYCLE
     Route: 042
  2. CAPECITABINE. [Suspect]
     Active Substance: CAPECITABINE
     Indication: OESTROGEN RECEPTOR POSITIVE BREAST CANCER
     Route: 048

REACTIONS (13)
  - Hypokalaemia [Unknown]
  - Rash [Unknown]
  - Pulmonary embolism [Unknown]
  - Acute kidney injury [Unknown]
  - Neuropathy peripheral [Unknown]
  - Fatigue [Unknown]
  - Palmar-plantar erythrodysaesthesia syndrome [Unknown]
  - Aspartate aminotransferase increased [Unknown]
  - Neutropenia [Unknown]
  - Mucosal inflammation [Unknown]
  - Stomatitis [Unknown]
  - Diarrhoea [Unknown]
  - Febrile neutropenia [Unknown]
